FAERS Safety Report 17484916 (Version 1)
Quarter: 2020Q1

REPORT INFORMATION
  Report Type: Report from Study
  Country: IT (occurrence: IT)
  Receive Date: 20200302
  Receipt Date: 20200302
  Transmission Date: 20200409
  Serious: Yes (Death, Hospitalization)
  Sender: FDA-Public Use
  Company Number: IT-PFIZER INC-2020066657

PATIENT
  Age: 67 Year
  Sex: Female

DRUGS (3)
  1. CARBOPLATIN. [Suspect]
     Active Substance: CARBOPLATIN
     Indication: ENDOMETRIAL CANCER
     Dosage: 603.78 MG, CYCLIC D1Q21
     Route: 042
     Dates: start: 20191112, end: 20191223
  2. AVELUMAB [Suspect]
     Active Substance: AVELUMAB
     Indication: ENDOMETRIAL CANCER
     Dosage: 700 MG, CYCLIC (D1Q21)
     Route: 042
     Dates: start: 20191112, end: 20191223
  3. PACLITAXEL. [Suspect]
     Active Substance: PACLITAXEL
     Indication: ENDOMETRIAL CANCER
     Dosage: 297.5 MG, CYCLIC D1Q21
     Route: 042
     Dates: start: 20191112, end: 20191223

REACTIONS (1)
  - Myositis [Fatal]

NARRATIVE: CASE EVENT DATE: 20200113
